FAERS Safety Report 8472878-6 (Version None)
Quarter: 2012Q2

REPORT INFORMATION
  Report Type: 
  Country: None (occurrence: None)
  Receive Date: 20120627
  Receipt Date: 20120316
  Transmission Date: 20120825
  Serious: No
  Sender: FDA-Public Use
  Company Number: US-MYLANLABS-2012S1006128

PATIENT
  Age: 88 Year
  Sex: Female

DRUGS (2)
  1. OMEPRAZOLE [Suspect]
     Indication: GASTROOESOPHAGEAL REFLUX DISEASE
     Route: 048
     Dates: start: 20111101
  2. AVAPRO [Concomitant]
     Indication: BLOOD PRESSURE INCREASED

REACTIONS (2)
  - RHINORRHOEA [None]
  - PRODUCTIVE COUGH [None]
